FAERS Safety Report 11358825 (Version 1)
Quarter: 2015Q3

REPORT INFORMATION
  Report Type: Spontaneous
  Country: US (occurrence: None)
  Receive Date: 20150807
  Receipt Date: 20150807
  Transmission Date: 20151125
  Serious: Yes (Disabling, Other)
  Sender: FDA-Public Use
  Company Number: None

PATIENT
  Age: 40 Year
  Sex: Female
  Weight: 62.14 kg

DRUGS (2)
  1. ESTROGEN [Suspect]
     Active Substance: ESTRONE\SUS SCROFA OVARY
     Indication: MIGRAINE
     Dosage: 1 PATCH 7 DAYS ON PERIOD, ONCE DAILY, APPLIED AS MEDICATED PATCH TO SKIN
     Dates: start: 20070101, end: 20100630
  2. TYLENOL [Concomitant]
     Active Substance: ACETAMINOPHEN

REACTIONS (12)
  - Menorrhagia [None]
  - Drug ineffective [None]
  - Back pain [None]
  - Thrombosis [None]
  - Uterine leiomyoma [None]
  - Abdominal pain [None]
  - Anaemia [None]
  - Breast tenderness [None]
  - Breast discharge [None]
  - Breast pain [None]
  - Uterine disorder [None]
  - Swelling [None]

NARRATIVE: CASE EVENT DATE: 20070101
